FAERS Safety Report 20801835 (Version 1)
Quarter: 2022Q2

REPORT INFORMATION
  Report Type: Spontaneous
  Country: CA (occurrence: None)
  Receive Date: 20220509
  Receipt Date: 20220509
  Transmission Date: 20220721
  Serious: Yes (Other)
  Sender: FDA-Public Use
  Company Number: CA-ROCHE-3087227

PATIENT
  Age: 29 Year
  Sex: Female
  Weight: 126 kg

DRUGS (10)
  1. ACTEMRA [Suspect]
     Active Substance: TOCILIZUMAB
     Indication: Product used for unknown indication
     Route: 065
  2. INFLECTRA [Suspect]
     Active Substance: INFLIXIMAB-DYYB
     Indication: Still^s disease
     Dosage: Q 0, 2, 6 WEEKS THEN EVERY 8 WEEKS, NOT STARTED YET; INTRAVENOUS
     Route: 042
  3. INFLECTRA [Suspect]
     Active Substance: INFLIXIMAB-DYYB
     Dosage: EVERY 8 WEEKS, INDUCTION WEEK 0, 2 6,MAINTENANCE Q 8 WEEKS, THERAPY START DATE: 31/MAR/2022
     Route: 042
  4. INFLECTRA [Suspect]
     Active Substance: INFLIXIMAB-DYYB
     Dosage: EVERY 8 WEEK, INDUCTION WEEK 0, 2, 6,MAINTENANCE Q 8 WEEKS, THERAPY START DATE:14/APR/2022
     Route: 042
  5. CANNABIS SATIVA FLOWERING TOP [Concomitant]
     Active Substance: CANNABIS SATIVA FLOWERING TOP
  6. CELEBREX [Concomitant]
     Active Substance: CELECOXIB
     Indication: Juvenile idiopathic arthritis
  7. HYDROXYCHLOROQUINE [Concomitant]
     Active Substance: HYDROXYCHLOROQUINE
  8. SULFASALAZINE [Concomitant]
     Active Substance: SULFASALAZINE
     Indication: Juvenile idiopathic arthritis
  9. TYLENOL [Concomitant]
     Active Substance: ACETAMINOPHEN
  10. PLAQUENIL [Concomitant]
     Active Substance: HYDROXYCHLOROQUINE SULFATE

REACTIONS (17)
  - Treatment failure [Unknown]
  - Hepatotoxicity [Unknown]
  - Nausea [Recovered/Resolved]
  - Off label use [Unknown]
  - Rash maculo-papular [Unknown]
  - Dizziness [Unknown]
  - Vomiting [Unknown]
  - Rhinorrhoea [Unknown]
  - Viral infection [Unknown]
  - Condition aggravated [Unknown]
  - Fatigue [Recovered/Resolved]
  - Arthralgia [Unknown]
  - Nasopharyngitis [Recovered/Resolved]
  - Pyrexia [Recovered/Resolved]
  - Condition aggravated [Unknown]
  - Rash [Unknown]
  - Musculoskeletal stiffness [Unknown]

NARRATIVE: CASE EVENT DATE: 20220301
